FAERS Safety Report 21627009 (Version 1)
Quarter: 2022Q4

REPORT INFORMATION
  Report Type: Spontaneous
  Country: US (occurrence: None)
  Receive Date: 20221121
  Receipt Date: 20221121
  Transmission Date: 20230113
  Serious: No
  Sender: FDA-Public Use
  Company Number: None

PATIENT
  Age: 26 Year
  Sex: Female
  Weight: 54.88 kg

DRUGS (1)
  1. NUVARING [Suspect]
     Active Substance: ETHINYL ESTRADIOL\ETONOGESTREL
     Indication: Dysmenorrhoea
     Dosage: FREQUENCY : EVERY THREE WEEKS;?
     Route: 067
     Dates: start: 2014

REACTIONS (5)
  - Drug intolerance [None]
  - Abdominal pain upper [None]
  - Migraine [None]
  - Product substitution issue [None]
  - Therapeutic response changed [None]
